FAERS Safety Report 4698492-6 (Version None)
Quarter: 2005Q2

REPORT INFORMATION
  Report Type: 
  Country: None (occurrence: None)
  Receive Date: 20050622
  Receipt Date: 20050610
  Transmission Date: 20051028
  Serious: Yes (Death, Other)
  Sender: FDA-Public Use
  Company Number: 2005084114

PATIENT
  Age: 55 Year

DRUGS (1)
  1. CELEBREX [Suspect]
     Indication: SHOULDER PAIN
     Dosage: ORAL
     Route: 048
     Dates: start: 20050501, end: 20050501

REACTIONS (2)
  - MULTIPLE DRUG OVERDOSE [None]
  - SUDDEN DEATH [None]
